FAERS Safety Report 18676294 (Version 3)
Quarter: 2021Q1

REPORT INFORMATION
  Report Type: Report from Study
  Country: DE (occurrence: DE)
  Receive Date: 20201229
  Receipt Date: 20210105
  Transmission Date: 20210419
  Serious: Yes (Death, Other)
  Sender: FDA-Public Use
  Company Number: DE-PFIZER INC-2020509430

PATIENT
  Age: 71 Year
  Sex: Male

DRUGS (12)
  1. METHOTREXATE SODIUM. [Suspect]
     Active Substance: METHOTREXATE SODIUM
     Dosage: 5 G MTX/M2 BSA
     Route: 037
  2. IFOSFAMIDE. [Suspect]
     Active Substance: IFOSFAMIDE
     Indication: CENTRAL NERVOUS SYSTEM LYMPHOMA
     Dosage: 800 MG/M2, OVER 1 HR VIA INFUSION, CYCLIC (DAY 1 TO 5)
     Route: 042
  3. MESNA. [Concomitant]
     Active Substance: MESNA
     Indication: CYSTITIS
  4. CYTARABINE. [Suspect]
     Active Substance: CYTARABINE
     Dosage: 30 MG, CYCLIC (INTRAVENTRICULAR)
     Route: 020
  5. METHOTREXATE SODIUM. [Suspect]
     Active Substance: METHOTREXATE SODIUM
     Indication: CENTRAL NERVOUS SYSTEM LYMPHOMA
     Dosage: 3 MG (INTRAVENTRICULAR)
     Route: 020
  6. DEXAMETHASONE. [Suspect]
     Active Substance: DEXAMETHASONE
     Indication: CENTRAL NERVOUS SYSTEM LYMPHOMA
     Dosage: 20 MG/M2 (DAY 1 TO 5)
     Route: 048
  7. CYTARABINE. [Suspect]
     Active Substance: CYTARABINE
     Indication: CENTRAL NERVOUS SYSTEM LYMPHOMA
     Dosage: 3 G ARA?C/M2 BSA/12 HR ON DAY 1 AND 2
     Route: 042
  8. VINDESINE [Suspect]
     Active Substance: VINDESINE
     Indication: CENTRAL NERVOUS SYSTEM LYMPHOMA
     Dosage: 5 MG, CYCLIC (DAY 1)
     Route: 042
  9. PREDNISOLONE. [Suspect]
     Active Substance: PREDNISOLONE
     Indication: CENTRAL NERVOUS SYSTEM LYMPHOMA
     Dosage: 2.5 MG, CYCLIC (INTRAVENTRICULAR, DAY 3, 4, 5, 6)
     Route: 020
  10. DEXAMETHASONE. [Suspect]
     Active Substance: DEXAMETHASONE
     Dosage: 10 MG/M2 (DAY 1 TO 5)
     Route: 048
  11. VINCRISTINE SULFATE. [Suspect]
     Active Substance: VINCRISTINE SULFATE
     Indication: CENTRAL NERVOUS SYSTEM LYMPHOMA
     Dosage: DAY 1, CYCLIC
     Route: 042
  12. PREDNISOLONE. [Suspect]
     Active Substance: PREDNISOLONE
     Dosage: 2.5 MG, CYCLIC (INTRAVENTRICULAR, DAY 1, 2, 3, 4)
     Route: 020

REACTIONS (8)
  - Pneumonia [Fatal]
  - Shunt infection [Unknown]
  - Multiple organ dysfunction syndrome [Fatal]
  - Bacterial sepsis [Fatal]
  - Thrombocytopenia [Unknown]
  - Neutropenia [Unknown]
  - Leukopenia [Unknown]
  - Encephalopathy [Recovered/Resolved]
